FAERS Safety Report 24242730 (Version 1)
Quarter: 2024Q3

REPORT INFORMATION
  Report Type: Spontaneous
  Country: US (occurrence: US)
  Receive Date: 20240823
  Receipt Date: 20240823
  Transmission Date: 20241017
  Serious: No
  Sender: PFIZER
  Company Number: US-PFIZER INC-PV202400094997

PATIENT
  Age: 69 Year
  Sex: Female
  Weight: 95.25 kg

DRUGS (1)
  1. GENOTROPIN [Suspect]
     Active Substance: SOMATROPIN
     Indication: Hypopituitarism
     Dosage: DOSE ON THE PEN IT IS 3 CLICKS OR 0.3MG AND IT IS INJECTED ONCE A NIGHT
     Dates: start: 2011

REACTIONS (3)
  - Device use error [Unknown]
  - Device material issue [Unknown]
  - Device mechanical issue [Unknown]

NARRATIVE: CASE EVENT DATE: 20240811
